FAERS Safety Report 7723797-1 (Version None)
Quarter: 2011Q3

REPORT INFORMATION
  Report Type: 
  Country: None (occurrence: None)
  Receive Date: 20110826
  Receipt Date: 20110812
  Transmission Date: 20111222
  Serious: Yes (Hospitalization, Other)
  Sender: FDA-Public Use
  Company Number: 2011P1008284

PATIENT
  Age: 50 Year
  Sex: Male
  Weight: 83.9154 kg

DRUGS (14)
  1. ZOLOFT [Concomitant]
  2. LYRICA [Concomitant]
  3. SPIRIVA [Concomitant]
  4. ADVAIR DISKUS 100/50 [Concomitant]
  5. ALBUTEROL [Concomitant]
  6. OXYGEN [Concomitant]
  7. TOPROL-XL [Concomitant]
  8. PARAFON FORTE (CHLORZOXAZONE) [Concomitant]
  9. SEROQUEL [Concomitant]
  10. EFFEXOR [Concomitant]
  11. FENTANYL-100 [Suspect]
     Indication: SPINAL FUSION ACQUIRED
     Dosage: ;Q48H; TDER
     Dates: start: 20090101
  12. ROXICODONE [Concomitant]
  13. COMBIVENT (IPRATROPIUM BROMIDE AND ALBUTEROL SULFATE) [Concomitant]
  14. ALBUTEROL SULFATE AUTOHALER [Concomitant]

REACTIONS (4)
  - DYSPNOEA [None]
  - TOOTH DISORDER [None]
  - VISUAL IMPAIRMENT [None]
  - LUNG INFECTION [None]
